FAERS Safety Report 5420002-6 (Version None)
Quarter: 2007Q3

REPORT INFORMATION
  Report Type: 
  Country: None (occurrence: None)
  Receive Date: 20070815
  Receipt Date: 20070730
  Transmission Date: 20080115
  Serious: Yes (Other)
  Sender: FDA-Public Use
  Company Number: 2007JP003333

PATIENT
  Age: 84 Year
  Sex: Male

DRUGS (5)
  1. FUNGUARD(MICAFUNGIN) INJECTION [Suspect]
     Indication: FUNGAL INFECTION
     Dosage: 50 MG, UID/QD, IV DRIP
     Route: 041
  2. CEFOZOPRAN HYDROCHLORIDE (CEFOZOPRAN HYDROCHLORIDE) [Concomitant]
  3. PREDNISOLONE [Concomitant]
  4. FAMOTIDINE [Concomitant]
  5. VANCOMYCIN HYDROCHLORIDE [Concomitant]

REACTIONS (5)
  - BACTERIAL INFECTION [None]
  - C-REACTIVE PROTEIN INCREASED [None]
  - COLONIC POLYP [None]
  - LARGE INTESTINAL HAEMORRHAGE [None]
  - WHITE BLOOD CELL COUNT INCREASED [None]
